FAERS Safety Report 9536972 (Version 1)
Quarter: 2013Q3

REPORT INFORMATION
  Report Type: Spontaneous
  Country: US (occurrence: US)
  Receive Date: 20130919
  Receipt Date: 20130919
  Transmission Date: 20140515
  Serious: Yes (Death, Hospitalization, Other)
  Sender: FDA-Public Use
  Company Number: US-BAYER-2013-111341

PATIENT
  Age: 42 Year
  Sex: Female
  Weight: 106.58 kg

DRUGS (23)
  1. YAZ [Suspect]
  2. ANCEF [Concomitant]
     Dosage: 1 GM
     Route: 042
     Dates: start: 20090710
  3. FENTANYL [Concomitant]
     Dosage: 275 MG, UNK
     Route: 042
     Dates: start: 20090710
  4. LISINOPRIL [Concomitant]
     Dosage: 10 MG, EVERY HS
     Route: 048
  5. ZOLOFT [Concomitant]
     Indication: PANIC ATTACK
     Dosage: 150 MG, HS
     Route: 048
  6. ALPRAZOLAM [Concomitant]
     Dosage: PRN
     Route: 048
  7. SIMVASTATIN [Concomitant]
     Dosage: 40 MG, DAILY
     Route: 048
  8. IMITREX [Concomitant]
     Indication: HEADACHE
     Route: 048
  9. MULTIVITAMINS [Concomitant]
     Route: 048
  10. KETOROLAC [Concomitant]
     Dosage: 30 MG, UNK
     Route: 042
     Dates: start: 20090710
  11. PROPOFOL [Concomitant]
     Dosage: 250 MG, UNK
     Route: 042
     Dates: start: 20090710
  12. ROCURONIUM [Concomitant]
     Dosage: 30 MG, UNK
     Route: 042
     Dates: start: 20090710
  13. LIDOCAINE [Concomitant]
     Dosage: 80 MG, UNK
     Route: 042
     Dates: start: 20090710
  14. SUCCINYLCHOLINE CHLORIDE [Concomitant]
     Dosage: 60 MG, UNK
     Route: 042
  15. PHENYLEPHRINE [Concomitant]
     Dosage: 100 MCG
     Route: 042
     Dates: start: 20090710
  16. SCOPOLAMINE [Concomitant]
     Dosage: UNK
     Route: 061
     Dates: start: 20090710
  17. NEOSTIGMINE [Concomitant]
     Dosage: 4 MG, UNK
     Route: 042
     Dates: start: 20090710
  18. GLYCOPYRROLATE [Concomitant]
     Dosage: 0.6 MG, UNK
     Route: 042
     Dates: start: 20090710
  19. MORPHINE [Concomitant]
     Dosage: 5 MG, UNK
     Route: 042
     Dates: start: 20090710
  20. PREDNISONE [Concomitant]
     Dosage: 1 MG, UNK
     Route: 042
     Dates: start: 20090710
  21. ONDANSETRON [Concomitant]
     Dosage: 4 MG, UNK
     Route: 042
     Dates: start: 20090710
  22. MIDAZOLAM [Concomitant]
     Dosage: 2 MG, UNK
     Route: 042
     Dates: start: 20090710
  23. LACTATED RINGER^S [Concomitant]
     Dosage: MULTIPLE INFUSIONS
     Route: 042
     Dates: start: 20090710

REACTIONS (2)
  - Pulmonary embolism [Fatal]
  - Cholelithiasis [None]
